FAERS Safety Report 7069598-1 (Version None)
Quarter: 2010Q4

REPORT INFORMATION
  Report Type: 
  Country: None (occurrence: None)
  Receive Date: 20101028
  Receipt Date: 20100414
  Transmission Date: 20110411
  Serious: No
  Sender: FDA-Public Use
  Company Number: US-WYE-H14593210

PATIENT

DRUGS (2)
  1. EFFEXOR [Suspect]
     Dosage: UNKNOWN
  2. EFFEXOR XR [Suspect]
     Dosage: UNKNOWN

REACTIONS (3)
  - FEELING ABNORMAL [None]
  - MALAISE [None]
  - NONSPECIFIC REACTION [None]
